FAERS Safety Report 25342249 (Version 1)
Quarter: 2025Q2

REPORT INFORMATION
  Report Type: Spontaneous
  Country: ES (occurrence: ES)
  Receive Date: 20250521
  Receipt Date: 20250521
  Transmission Date: 20250717
  Serious: Yes (Life-Threatening, Hospitalization)
  Sender: DR REDDYS
  Company Number: None

PATIENT
  Age: 70 Year
  Sex: Male

DRUGS (3)
  1. DOXORUBICIN [Suspect]
     Active Substance: DOXORUBICIN
     Indication: Small cell lung cancer
     Dosage: 100MG EVERY 21 DAYS
     Route: 042
     Dates: start: 20250314, end: 20250415
  2. CYCLOPHOSPHAMIDE [Suspect]
     Active Substance: CYCLOPHOSPHAMIDE
     Indication: Small cell lung cancer
     Dosage: 2000MG EVERY 21 DAYS
     Route: 042
     Dates: start: 20250314, end: 20250415
  3. VINCRISTINE [Suspect]
     Active Substance: VINCRISTINE
     Indication: Small cell lung cancer
     Dosage: 2 MG EVERY 21 DAYS
     Route: 042
     Dates: start: 20250314, end: 20250415

REACTIONS (1)
  - Agranulocytosis [Recovered/Resolved]

NARRATIVE: CASE EVENT DATE: 20250425
